FAERS Safety Report 7711384-0 (Version None)
Quarter: 2011Q3

REPORT INFORMATION
  Report Type: 
  Country: None (occurrence: None)
  Receive Date: 20110815
  Receipt Date: 20110719
  Transmission Date: 20111222
  Serious: Yes (Hospitalization)
  Sender: FDA-Public Use
  Company Number: 2011029409

PATIENT
  Age: 75 Year
  Sex: Male

DRUGS (5)
  1. BISOPROLOL FUMARATE [Concomitant]
  2. SIMVASTATIN [Concomitant]
  3. RILUZOLE [Suspect]
     Dosage: ORAL
     Route: 048
     Dates: start: 20110114, end: 20110129
  4. AMLODIPIN (AMLODIPIN) [Concomitant]
  5. SANDOGLOBULIN [Suspect]
     Dosage: 30 G QD, INTRAVENOUS
     Route: 042

REACTIONS (3)
  - HAEMOLYSIS [None]
  - CHILLS [None]
  - ABDOMINAL DISCOMFORT [None]
